FAERS Safety Report 17351074 (Version 1)
Quarter: 2020Q1

REPORT INFORMATION
  Report Type: Report from Study
  Country: ES (occurrence: ES)
  Receive Date: 20200130
  Receipt Date: 20200130
  Transmission Date: 20200409
  Serious: Yes (Hospitalization)
  Sender: FDA-Public Use
  Company Number: ES-TEVA-2020-ES-1176578

PATIENT
  Age: 76 Year
  Sex: Male

DRUGS (6)
  1. OMEPRAZOL (2141A) [Concomitant]
     Active Substance: OMEPRAZOLE
     Indication: PROPHYLAXIS
     Dosage: 20 MG
     Route: 048
     Dates: start: 20120319
  2. ADALIMUMAB (2906A) [Concomitant]
     Active Substance: ADALIMUMAB
     Indication: CROHN^S DISEASE
     Dosage: 80 MG
     Route: 058
     Dates: start: 20170303, end: 20180520
  3. LEDERFOLIN 15 MG COMPRIMIDOS, 10 COMPRIMIDOS [Concomitant]
     Active Substance: LEUCOVORIN CALCIUM
     Dosage: 150 MG
     Route: 048
     Dates: start: 20160603, end: 20180520
  4. ENALAPRIL MALEATO (2142MA) [Suspect]
     Active Substance: ENALAPRIL MALEATE
     Dosage: 20 MG
     Route: 048
     Dates: start: 20180514, end: 20180520
  5. BETMIGA 50MG COMPRIMIDOS DE LIBERACION PROLONGADA, 30 COMPRIMIDOS [Concomitant]
     Dosage: 50 MG
     Route: 048
     Dates: start: 20170825, end: 20180520
  6. ENALAPRIL MALEATO (2142MA) [Concomitant]
     Active Substance: ENALAPRIL MALEATE
     Dosage: 10 MG
     Route: 048
     Dates: start: 20180115, end: 20180513

REACTIONS (1)
  - Acute kidney injury [Recovered/Resolved]

NARRATIVE: CASE EVENT DATE: 20180518
